FAERS Safety Report 7452198-9 (Version None)
Quarter: 2011Q2

REPORT INFORMATION
  Report Type: 
  Country: None (occurrence: None)
  Receive Date: 20110502
  Receipt Date: 20110321
  Transmission Date: 20111010
  Serious: Yes (Other)
  Sender: FDA-Public Use
  Company Number: US-BAYER-2010-002218

PATIENT
  Age: 36 Year
  Sex: Female

DRUGS (4)
  1. ACETAMINOPHEN [Concomitant]
     Indication: PAIN
     Dosage: UNK UNK, PRN
  2. IBUPROFEN [Concomitant]
     Indication: PAIN
     Dosage: UNK UNK, PRN
  3. YASMIN [Suspect]
     Indication: PRODUCT USED FOR UNKNOWN INDICATION
  4. YAZ [Suspect]
     Indication: PRODUCT USED FOR UNKNOWN INDICATION

REACTIONS (1)
  - CHOLELITHIASIS [None]
